FAERS Safety Report 8179903-0 (Version None)
Quarter: 2012Q1

REPORT INFORMATION
  Report Type: 
  Country: None (occurrence: None)
  Receive Date: 20120302
  Receipt Date: 20120221
  Transmission Date: 20120608
  Serious: Yes (Other)
  Sender: FDA-Public Use
  Company Number: US-BRISTOL-MYERS SQUIBB COMPANY-16387979

PATIENT
  Age: 52 Year
  Sex: Male

DRUGS (2)
  1. LOVENOX [Suspect]
     Indication: THROMBOSIS
     Dates: start: 20120113
  2. WARFARIN SODIUM [Suspect]
     Dates: start: 20120101

REACTIONS (6)
  - FATIGUE [None]
  - HEPATIC NEOPLASM MALIGNANT [None]
  - ABDOMINAL PAIN [None]
  - VOMITING [None]
  - DECREASED APPETITE [None]
  - ASTHENIA [None]
